FAERS Safety Report 24334936 (Version 2)
Quarter: 2024Q3

REPORT INFORMATION
  Report Type: Spontaneous
  Country: ES (occurrence: ES)
  Receive Date: 20240918
  Receipt Date: 20240923
  Transmission Date: 20241016
  Serious: Yes (Death, Hospitalization)
  Sender: PURDUE
  Company Number: ES-PURDUE-USA-2024-0312048

PATIENT
  Age: 88 Year
  Sex: Male

DRUGS (1)
  1. MORPHINE SULFATE [Suspect]
     Active Substance: MORPHINE SULFATE
     Indication: Back pain
     Dosage: 5 MILLIGRAM, Q12H (1-0-1, 60 TABLETS)
     Route: 048
     Dates: start: 20240805, end: 20240809

REACTIONS (6)
  - Confusional state [Fatal]
  - Faecaloma [Fatal]
  - Respiratory failure [Fatal]
  - Cardio-respiratory arrest [Fatal]
  - Acute kidney injury [Fatal]
  - Urinary retention [Recovered/Resolved]

NARRATIVE: CASE EVENT DATE: 20240809
